FAERS Safety Report 6930513-X (Version None)
Quarter: 2010Q3

REPORT INFORMATION
  Report Type: 
  Country: None (occurrence: None)
  Receive Date: 20100818
  Receipt Date: 20100810
  Transmission Date: 20110219
  Serious: Yes (Hospitalization)
  Sender: FDA-Public Use
  Company Number: A0859392A

PATIENT
  Age: 72 Year
  Sex: Female

DRUGS (3)
  1. TYKERB [Suspect]
     Indication: BREAST CANCER
     Dosage: 250MG FIVE TIMES PER DAY
     Route: 048
     Dates: start: 20100403
  2. XELODA [Concomitant]
  3. ACETAMINOPHEN [Concomitant]

REACTIONS (6)
  - ADVERSE EVENT [None]
  - DEHYDRATION [None]
  - HERPES ZOSTER [None]
  - HYPOAESTHESIA [None]
  - PARAESTHESIA [None]
  - STOMATITIS [None]
